FAERS Safety Report 5473433-2 (Version None)
Quarter: 2007Q4

REPORT INFORMATION
  Report Type: 
  Country: None (occurrence: None)
  Receive Date: 20071001
  Receipt Date: 20070921
  Transmission Date: 20080405
  Serious: Yes (Hospitalization, Disabling)
  Sender: FDA-Public Use
  Company Number: IE-ASTRAZENECA-2007GB01429

PATIENT
  Age: 26521 Day
  Sex: Male

DRUGS (5)
  1. CRESTOR [Suspect]
     Indication: BLOOD CHOLESTEROL INCREASED
     Route: 048
     Dates: start: 20060525
  2. WARFARIN SODIUM [Concomitant]
     Indication: ATRIAL FIBRILLATION
     Dates: start: 20021101
  3. LANOXIN [Concomitant]
     Indication: ATRIAL FIBRILLATION
     Dates: start: 20021101
  4. ATACAND [Concomitant]
     Indication: BLOOD PRESSURE INCREASED
     Dates: start: 20021101
  5. DILZEM [Concomitant]
     Indication: BLOOD PRESSURE INCREASED
     Dates: start: 20021101

REACTIONS (1)
  - TENDON RUPTURE [None]
